FAERS Safety Report 10298872 (Version 2)
Quarter: 2014Q3

REPORT INFORMATION
  Report Type: Spontaneous
  Country: FR (occurrence: FR)
  Receive Date: 20140711
  Receipt Date: 20140915
  Transmission Date: 20150326
  Serious: Yes (Hospitalization)
  Sender: FDA-Public Use
  Company Number: FR-PFIZER INC-2014187872

PATIENT
  Age: 88 Year
  Sex: Female

DRUGS (15)
  1. DACRYOSERUM [Concomitant]
     Active Substance: BORIC ACID\SODIUM BORATE
     Indication: VISUAL ACUITY REDUCED
     Dosage: UNK
     Route: 047
     Dates: start: 20140306
  2. ADIAZINE [Concomitant]
     Active Substance: SULFADIAZINE
     Indication: EYE INFECTION TOXOPLASMAL
     Dosage: UNK
     Dates: start: 20140520, end: 20140529
  3. METHOTREXATE [Concomitant]
     Active Substance: METHOTREXATE
     Indication: RHEUMATOID ARTHRITIS
     Dosage: 10 MG, WEEKLY
  4. MALOCIDE [Suspect]
     Active Substance: PYRIMETHAMINE
     Indication: EYE INFECTION TOXOPLASMAL
     Dosage: UNK
     Route: 048
     Dates: start: 20140514
  5. CHIBRO-CADRON [Concomitant]
     Active Substance: DEXAMETHASONE\NEOMYCIN SULFATE
     Indication: EYE INFECTION
     Dosage: 1 GTT, 4X/DAY
     Route: 047
     Dates: start: 20140514
  6. CORTANCYL [Concomitant]
     Active Substance: PREDNISONE
     Dosage: 15 MG, 1X/DAY THEN PROGRESSIVE DECREASED
     Route: 048
     Dates: start: 20140329
  7. DOXYCYCLINE. [Concomitant]
     Active Substance: DOXYCYCLINE
     Indication: TERTIARY SYPHILIS
     Dosage: 300 MG
     Dates: start: 20140523
  8. ROCEPHINE [Suspect]
     Active Substance: CEFTRIAXONE SODIUM
     Indication: TERTIARY SYPHILIS
     Dosage: 2 G, 1X/DAY
     Dates: start: 20140514, end: 20140518
  9. ZITHROMAX [Suspect]
     Active Substance: AZITHROMYCIN DIHYDRATE
     Dosage: UNK
     Dates: start: 20140529, end: 20140530
  10. LEDERFOLIN [Concomitant]
     Active Substance: LEUCOVORIN CALCIUM
     Indication: EYE INFECTION TOXOPLASMAL
     Dosage: 50 MG, WEEKLY
     Route: 048
     Dates: start: 20140514
  11. ATROPINE SULFATE. [Concomitant]
     Active Substance: ATROPINE SULFATE
     Indication: VISUAL ACUITY REDUCED
     Dosage: 1 GTT, 1X/DAY
     Route: 047
     Dates: start: 20140306
  12. MAXIDEX [Concomitant]
     Active Substance: DEXAMETHASONE
     Indication: VISUAL ACUITY REDUCED
     Dosage: UNK
     Route: 047
     Dates: start: 20140306
  13. ZITHROMAX [Suspect]
     Active Substance: AZITHROMYCIN DIHYDRATE
     Indication: EYE INFECTION TOXOPLASMAL
     Dosage: 250 MG, 1X/DAY
     Route: 048
     Dates: start: 20140514, end: 20140520
  14. ROCEPHINE [Suspect]
     Active Substance: CEFTRIAXONE SODIUM
     Dosage: 1 G, 1X/DAY
     Dates: start: 20140519, end: 20140523
  15. CORTANCYL [Concomitant]
     Active Substance: PREDNISONE
     Dosage: 20 MG, 1X/DAY
     Route: 048
     Dates: start: 20140314, end: 20140328

REACTIONS (3)
  - Vomiting [Recovered/Resolved]
  - Hallucination, visual [Not Recovered/Not Resolved]
  - Cough [Recovered/Resolved]

NARRATIVE: CASE EVENT DATE: 20140519
